FAERS Safety Report 7324109-8 (Version None)
Quarter: 2011Q1

REPORT INFORMATION
  Report Type: 
  Country: None (occurrence: None)
  Receive Date: 20110301
  Receipt Date: 20110228
  Transmission Date: 20110831
  Serious: Yes (Life-Threatening, Hospitalization, Other)
  Sender: FDA-Public Use
  Company Number: GB-ABBOTT-11P-167-0706214-00

PATIENT
  Sex: Male

DRUGS (3)
  1. HUMIRA [Suspect]
     Route: 058
     Dates: start: 20110128, end: 20110211
  2. HUMIRA [Suspect]
     Indication: CROHN'S DISEASE
     Route: 058
     Dates: start: 20110114, end: 20110114
  3. PAMIDRONATE DISODIUM [Concomitant]
     Indication: PRODUCT USED FOR UNKNOWN INDICATION

REACTIONS (3)
  - HEADACHE [None]
  - HYPOAESTHESIA [None]
  - VISUAL IMPAIRMENT [None]
